FAERS Safety Report 16032553 (Version 1)
Quarter: 2019Q1

REPORT INFORMATION
  Report Type: Report from Study
  Country: None (occurrence: US)
  Receive Date: 20190304
  Receipt Date: 20190304
  Transmission Date: 20190418
  Serious: Yes (Hospitalization, Other)
  Sender: FDA-Public Use
  Company Number: US-ABBVIE-19K-163-2670049-00

PATIENT
  Age: 61 Year
  Sex: Male
  Weight: 68.1 kg

DRUGS (1)
  1. HUMIRA [Suspect]
     Active Substance: ADALIMUMAB
     Indication: CROHN^S DISEASE
     Route: 058

REACTIONS (9)
  - Injection site swelling [Not Recovered/Not Resolved]
  - Device issue [Unknown]
  - Medical induction of coma [Recovered/Resolved]
  - Incorrect dose administered [Unknown]
  - Small intestinal obstruction [Recovered/Resolved]
  - Injection site papule [Unknown]
  - Small intestinal resection [Recovering/Resolving]
  - Abdominal adhesions [Recovered/Resolved]
  - Abdominal pain [Recovered/Resolved]

NARRATIVE: CASE EVENT DATE: 201812
